FAERS Safety Report 7584114-3 (Version None)
Quarter: 2011Q2

REPORT INFORMATION
  Report Type: 
  Country: None (occurrence: None)
  Receive Date: 20110628
  Receipt Date: 20110628
  Transmission Date: 20111010
  Serious: Yes (Disabling)
  Sender: FDA-Public Use
  Company Number: None

PATIENT

DRUGS (1)
  1. AZITHROMYCIN [Suspect]
     Indication: MYCOBACTERIUM AVIUM COMPLEX INFECTION
     Dosage: AZITHROMYCIN GREENSTONE LTD 500 MG 1 DAILY BY MOUTH
     Route: 048
     Dates: start: 20100301, end: 20110614

REACTIONS (2)
  - HEARING IMPAIRED [None]
  - HYPOACUSIS [None]
